FAERS Safety Report 8805090 (Version 1)
Quarter: 2012Q4

REPORT INFORMATION
  Report Type: 
  Country: US (occurrence: US)
  Receive Date: 20120924
  Receipt Date: 20120924
  Transmission Date: 20130627
  Serious: No
  Sender: FDA-Public Use
  Company Number: US-ALLERGAN-1211904US

PATIENT
  Age: 52 Year
  Sex: Female

DRUGS (1)
  1. LUMIGAN [Suspect]
     Indication: INTRAOCULAR PRESSURE
     Dosage: 2 Gtt, UNK
     Route: 047

REACTIONS (2)
  - Abnormal sensation in eye [Unknown]
  - Drug ineffective [Unknown]
